FAERS Safety Report 5347948-1 (Version None)
Quarter: 2007Q2

REPORT INFORMATION
  Report Type: 
  Country: None (occurrence: None)
  Receive Date: 20070511
  Receipt Date: 20070424
  Transmission Date: 20071010
  Serious: Yes (Other)
  Sender: FDA-Public Use
  Company Number: WWISSUE-78

PATIENT
  Age: 79 Year
  Sex: Female

DRUGS (5)
  1. LOTEMAX [Suspect]
     Indication: OFF LABEL USE
     Dosage: 3-4 DROPS/3-4 DAILY/EYE
     Dates: start: 20070222
  2. DOXYCYCLINE HYCLATE [Suspect]
     Indication: BLEPHARITIS
     Dosage: 100MG/1-2 DAILY/ORAL
     Route: 048
     Dates: start: 20070222, end: 20070308
  3. DOXYCYCLINE HYCLATE [Suspect]
     Indication: BLEPHARITIS
     Dosage: 100MG/1-2 DAILY/ORAL
     Route: 048
     Dates: start: 20070327, end: 20070403
  4. BRYTHROMYCIN OPTHALMIC OINTMENT [Concomitant]
  5. NEXIUM [Concomitant]

REACTIONS (1)
  - BLEPHARITIS [None]
